FAERS Safety Report 6792965-8 (Version None)
Quarter: 2010Q2

REPORT INFORMATION
  Report Type: 
  Country: None (occurrence: None)
  Receive Date: 20100624
  Receipt Date: 20090109
  Transmission Date: 20101027
  Serious: Yes (Hospitalization)
  Sender: FDA-Public Use
  Company Number: US-PFIZER INC-2008091560

PATIENT
  Age: 55 Year

DRUGS (1)
  1. GEODON [Suspect]

REACTIONS (1)
  - VOMITING [None]
